FAERS Safety Report 9570039 (Version 1)
Quarter: 2013Q3

REPORT INFORMATION
  Report Type: Spontaneous
  Country: US (occurrence: US)
  Receive Date: 20130930
  Receipt Date: 20130930
  Transmission Date: 20140515
  Serious: No
  Sender: FDA-Public Use
  Company Number: US-AMGEN-USASP2013065120

PATIENT
  Age: 33 Year
  Sex: Male

DRUGS (2)
  1. ENBREL [Suspect]
     Indication: RHEUMATOID ARTHRITIS
     Dosage: 50 MG, QWK
     Route: 058
     Dates: start: 201306
  2. LEFLUNOMIDE [Concomitant]
     Dosage: UNK

REACTIONS (3)
  - Glomerular filtration rate increased [Unknown]
  - Injection site pruritus [Unknown]
  - Injection site erythema [Unknown]
